FAERS Safety Report 21931174 (Version 1)
Quarter: 2023Q1

REPORT INFORMATION
  Report Type: Spontaneous
  Country: US (occurrence: US)
  Receive Date: 20230131
  Receipt Date: 20230131
  Transmission Date: 20230418
  Serious: Yes (Other)
  Sender: FDA-Public Use
  Company Number: US-BAYER-2023P007044

PATIENT
  Age: 69 Year
  Sex: Female

DRUGS (2)
  1. ASPIRIN [Suspect]
     Active Substance: ASPIRIN
  2. DIPYRIDAMOLE [Suspect]
     Active Substance: DIPYRIDAMOLE

REACTIONS (4)
  - Duodenal ulcer [None]
  - Gastritis erosive [None]
  - Melaena [None]
  - Labelled drug-drug interaction medication error [None]
